FAERS Safety Report 14064143 (Version 1)
Quarter: 2017Q4

REPORT INFORMATION
  Report Type: Spontaneous
  Country: NO (occurrence: NO)
  Receive Date: 20171009
  Receipt Date: 20171009
  Transmission Date: 20180321
  Serious: Yes (Life-Threatening, Hospitalization, Other)
  Sender: FDA-Public Use
  Company Number: NO-ROCHE-2003575

PATIENT
  Age: 29 Year
  Sex: Female

DRUGS (2)
  1. PREDNISOLONE. [Concomitant]
     Active Substance: PREDNISOLONE
     Indication: GRANULOMATOSIS WITH POLYANGIITIS
     Dosage: LOW DOSE
     Route: 065
  2. RITUXIMAB. [Suspect]
     Active Substance: RITUXIMAB
     Indication: GRANULOMATOSIS WITH POLYANGIITIS
     Route: 042

REACTIONS (5)
  - Ileal perforation [Recovered/Resolved]
  - Respiratory failure [Recovered/Resolved]
  - Hypersensitivity vasculitis [Recovered/Resolved]
  - Pyoderma gangrenosum [Recovered/Resolved]
  - Peritonitis [Recovered/Resolved]
